FAERS Safety Report 12348443 (Version 1)
Quarter: 2016Q2

REPORT INFORMATION
  Report Type: Spontaneous
  Country: US (occurrence: US)
  Receive Date: 20160509
  Receipt Date: 20160509
  Transmission Date: 20160815
  Serious: No
  Sender: FDA-Public Use
  Company Number: US-BAYER-2016-088636

PATIENT
  Age: 65 Year
  Sex: Male

DRUGS (3)
  1. GADAVIST [Suspect]
     Active Substance: GADOBUTROL
     Indication: SYNCOPE
  2. GADAVIST [Suspect]
     Active Substance: GADOBUTROL
     Indication: PAIN
     Dosage: 10 ML, ONCE
     Dates: start: 20160506, end: 20160506
  3. GADAVIST [Suspect]
     Active Substance: GADOBUTROL
     Indication: NECK SURGERY

REACTIONS (2)
  - Product use issue [None]
  - Urticaria [None]

NARRATIVE: CASE EVENT DATE: 20160506
